FAERS Safety Report 23187032 (Version 1)
Quarter: 2023Q4

REPORT INFORMATION
  Report Type: Spontaneous
  Country: US (occurrence: None)
  Receive Date: 20231114
  Receipt Date: 20231114
  Transmission Date: 20240109
  Serious: No
  Sender: FDA-Public Use
  Company Number: None

PATIENT
  Age: 55 Year
  Sex: Female
  Weight: 114.76 kg

DRUGS (1)
  1. TREMFYA [Suspect]
     Active Substance: GUSELKUMAB
     Indication: Psoriatic arthropathy
     Dosage: OTHER FREQUENCY : 0DAYDAY28ASDIR;?INJECT 100MG SUBCUTANEOUSLY ON DAY O AND DAY 28 AS DIRECTED?
     Route: 058
     Dates: start: 202012

REACTIONS (1)
  - Liver transplant [None]
